FAERS Safety Report 12405573 (Version 2)
Quarter: 2016Q2

REPORT INFORMATION
  Report Type: Report from Study
  Country: CN (occurrence: CN)
  Receive Date: 20160526
  Receipt Date: 20160620
  Transmission Date: 20160815
  Serious: Yes (Other)
  Sender: FDA-Public Use
  Company Number: CN-ROCHE-1763116

PATIENT

DRUGS (1)
  1. ALTEPLASE [Suspect]
     Active Substance: ALTEPLASE
     Indication: CEREBRAL ARTERY EMBOLISM
     Dosage: DOSE: 10% OF TOTAL DOSE INITIALLY INTRAVENOUSLY INJECTED OVER THE COURSE OF 1 MINUTE, FOLLOWED BY TH
     Route: 042

REACTIONS (2)
  - Encephalopathy [Unknown]
  - Brain herniation [Unknown]
